FAERS Safety Report 6037235-0 (Version None)
Quarter: 2009Q1

REPORT INFORMATION
  Report Type: 
  Country: None (occurrence: None)
  Receive Date: 20090114
  Receipt Date: 20090109
  Transmission Date: 20090719
  Serious: Yes (Hospitalization)
  Sender: FDA-Public Use
  Company Number: A0688717A

PATIENT
  Age: 54 Year
  Sex: Male
  Weight: 97.7 kg

DRUGS (10)
  1. AVANDIA [Suspect]
     Dosage: 8MG PER DAY
     Route: 048
     Dates: start: 20040607, end: 20050708
  2. ACARBOSE [Concomitant]
     Dates: start: 20041206, end: 20041207
  3. NIACIN [Concomitant]
  4. METOPROLOL [Concomitant]
  5. NOVOLIN [Concomitant]
  6. AVAPRO [Concomitant]
  7. AVALIDE [Concomitant]
  8. VICODIN [Concomitant]
     Dates: start: 20040801
  9. VIAGRA [Concomitant]
  10. HYDROCHLOROTHIAZIDE [Concomitant]

REACTIONS (3)
  - INJURY [None]
  - MYOCARDIAL INFARCTION [None]
  - PAIN [None]
